FAERS Safety Report 4408501-7 (Version None)
Quarter: 2004Q3

REPORT INFORMATION
  Report Type: 
  Country: None (occurrence: None)
  Receive Date: 20040715
  Receipt Date: 20040630
  Transmission Date: 20050211
  Serious: Yes (Hospitalization)
  Sender: FDA-Public Use
  Company Number: 600710

PATIENT
  Age: 6 Year
  Sex: Male
  Weight: 29.5 kg

DRUGS (8)
  1. RECOMBINATE [Suspect]
     Indication: ALLERGY TEST
     Dosage: 500 IU; PRN; INTRAVENOUS
     Route: 042
     Dates: start: 20020224, end: 20020224
  2. RECOMBINATE [Suspect]
     Indication: BENIGN TUMOUR EXCISION
     Dosage: 500 IU; PRN; INTRAVENOUS
     Route: 042
     Dates: start: 20020224, end: 20020224
  3. RECOMBINATE [Suspect]
     Indication: FACTOR VIII DEFICIENCY
     Dosage: 500 IU; PRN; INTRAVENOUS
     Route: 042
     Dates: start: 20020224, end: 20020224
  4. NITRAZEPAM [Concomitant]
  5. OTRIVEN [Concomitant]
  6. PARACETAMOL [Concomitant]
  7. AUGMENTIN [Concomitant]
  8. AUGMENTIN '125' [Concomitant]

REACTIONS (4)
  - ALLERGY TEST POSITIVE [None]
  - ANAPHYLACTIC REACTION [None]
  - INFUSION RELATED REACTION [None]
  - PYREXIA [None]
